FAERS Safety Report 7894160-8 (Version None)
Quarter: 2011Q4

REPORT INFORMATION
  Report Type: 
  Country: None (occurrence: None)
  Receive Date: 20111104
  Receipt Date: 20111103
  Transmission Date: 20120403
  Serious: No
  Sender: FDA-Public Use
  Company Number: US-PFIZER INC-2011067267

PATIENT
  Sex: Male
  Weight: 86.168 kg

DRUGS (13)
  1. ZETIA [Suspect]
     Indication: BLOOD CHOLESTEROL INCREASED
     Dosage: 10 MG, DAILY
     Route: 048
  2. CRESTOR [Suspect]
     Indication: CARDIAC DISORDER
     Dosage: 20 MG, DAILY
     Route: 048
  3. OXYCODONE AND ACETAMINOPHEN [Suspect]
     Dosage: UNK
  4. NEXIUM [Suspect]
     Indication: GASTROOESOPHAGEAL REFLUX DISEASE
  5. ZETIA [Suspect]
     Indication: CARDIAC DISORDER
  6. NORVASC [Suspect]
     Indication: CARDIAC DISORDER
     Dosage: 5 MG, DAILY
     Route: 048
  7. ASPIRIN [Suspect]
     Indication: CARDIAC DISORDER
     Dosage: 81 MG, UNK
  8. SOTALOL [Suspect]
     Indication: CARDIAC DISORDER
     Dosage: 120 MG, UNK
  9. DEPO-MEDROL [Suspect]
     Indication: BACK PAIN
     Dosage: UNK,EVERY 5 TO 6 MONTHS
     Dates: start: 20100501, end: 20110101
  10. FLECTOR [Suspect]
     Dosage: UNK
     Route: 061
  11. NEXIUM [Suspect]
     Indication: ABDOMINAL DISCOMFORT
     Dosage: 40 MG, DAILY
     Route: 048
  12. FLOMAX [Suspect]
     Indication: PROSTATIC DISORDER
     Dosage: UNK
     Route: 048
  13. SOTALOL [Suspect]
     Indication: HEART RATE IRREGULAR

REACTIONS (3)
  - ABDOMINAL DISCOMFORT [None]
  - DRUG INEFFECTIVE [None]
  - PAIN [None]
